FAERS Safety Report 10971084 (Version 1)
Quarter: 2015Q1

REPORT INFORMATION
  Report Type: Spontaneous
  Country: CA (occurrence: None)
  Receive Date: 20150330
  Receipt Date: 20150330
  Transmission Date: 20150721
  Serious: Yes (Hospitalization)
  Sender: FDA-Public Use
  Company Number: None

PATIENT
  Age: 41 Year
  Sex: Female
  Weight: 57.15 kg

DRUGS (8)
  1. VITAMIN D [Concomitant]
     Active Substance: CHOLECALCIFEROL
  2. DIAZEPAM 2 MG TEVA PHARMACE [Suspect]
     Active Substance: DIAZEPAM
     Dosage: 1 PILL THREE TIMES DAILY TAKEN BY MOUTH
     Route: 048
  3. TAURINE AMINO ACID [Concomitant]
  4. NIACINAMIDE [Concomitant]
     Active Substance: NIACINAMIDE
  5. LORAZEPAM 1 MG [Suspect]
     Active Substance: LORAZEPAM
     Dosage: 1 SUBLINGUAL PILL AT BEDTIME TAKEN BY MOUTH
     Route: 048
  6. MULTI VITAMIN WITH IRON [Concomitant]
  7. MAGNESIUM CITRATE. [Concomitant]
     Active Substance: MAGNESIUM CITRATE
  8. CREATINE [Concomitant]
     Active Substance: CREATINE

REACTIONS (6)
  - Drug withdrawal syndrome [None]
  - Myalgia [None]
  - Drug dependence [None]
  - Malaise [None]
  - Heart rate abnormal [None]
  - Vision blurred [None]

NARRATIVE: CASE EVENT DATE: 20150329
